FAERS Safety Report 21676699 (Version 2)
Quarter: 2023Q1

REPORT INFORMATION
  Report Type: Report from Study
  Country: US (occurrence: US)
  Receive Date: 20221202
  Receipt Date: 20230220
  Transmission Date: 20230417
  Serious: Yes (Hospitalization, Other)
  Sender: FDA-Public Use
  Company Number: US-ABBVIE-4219725

PATIENT
  Sex: Male
  Weight: 70 kg

DRUGS (1)
  1. IMBRUVICA [Suspect]
     Active Substance: IBRUTINIB
     Indication: Chronic lymphocytic leukaemia
     Route: 048
     Dates: end: 2022

REACTIONS (10)
  - Haemorrhage [Recovered/Resolved]
  - Hypoacusis [Unknown]
  - Oxygen saturation decreased [Recovered/Resolved]
  - Dysstasia [Recovered/Resolved]
  - Joint swelling [Not Recovered/Not Resolved]
  - Weight decreased [Recovering/Resolving]
  - Arthropathy [Unknown]
  - Dyspnoea [Recovered/Resolved]
  - Pulmonary oedema [Recovered/Resolved]
  - White blood cell count decreased [Recovering/Resolving]

NARRATIVE: CASE EVENT DATE: 20220101
